FAERS Safety Report 5012368-6 (Version None)
Quarter: 2006Q2

REPORT INFORMATION
  Report Type: 
  Country: None (occurrence: None)
  Receive Date: 20060525
  Receipt Date: 20060525
  Transmission Date: 20061013
  Serious: Yes (Disabling)
  Sender: FDA-Public Use
  Company Number: None

PATIENT
  Age: 50 Year
  Sex: Male
  Weight: 95.91 kg

DRUGS (1)
  1. HALOPERIDOL [Suspect]
     Dates: start: 20050720, end: 20050720

REACTIONS (1)
  - HYPERTHERMIA MALIGNANT [None]
